FAERS Safety Report 8975562 (Version 3)
Quarter: 2013Q1

REPORT INFORMATION
  Report Type: Report from Study
  Country: FR (occurrence: FR)
  Receive Date: 20121219
  Receipt Date: 20130110
  Transmission Date: 20140127
  Serious: Yes (Hospitalization, Other)
  Sender: FDA-Public Use
  Company Number: PHHY2012FR115682

PATIENT
  Age: 73 Year
  Sex: Female

DRUGS (8)
  1. ACLASTA/ZOLEDRONATE [Suspect]
     Indication: OSTEOPOROSIS
     Route: 042
     Dates: start: 20120404
  2. MEDIATENSYL [Concomitant]
     Dates: start: 1995
  3. FLECAINE [Concomitant]
     Dates: start: 1997
  4. FENOFIBRATE [Concomitant]
     Dates: start: 1995
  5. ARAVA [Concomitant]
     Indication: RHEUMATOID ARTHRITIS
     Dosage: 10 MG, QD
     Dates: start: 2005
  6. CORTANCYL [Concomitant]
     Indication: RHEUMATOID ARTHRITIS
     Dosage: 5 MG, QD
     Dates: start: 2001
  7. DAFALGAN [Concomitant]
     Dates: start: 2012
  8. MICARDIS PLUS [Concomitant]
     Indication: HYPERTENSION
     Dosage: 1 DF, QD

REACTIONS (5)
  - Lumbar vertebral fracture [Unknown]
  - Lumbar spinal stenosis [Unknown]
  - Back pain [Unknown]
  - Sciatica [Recovered/Resolved]
  - Osteoarthritis [Unknown]
